FAERS Safety Report 22310992 (Version 1)
Quarter: 2023Q2

REPORT INFORMATION
  Report Type: Spontaneous
  Country: US (occurrence: US)
  Receive Date: 20230511
  Receipt Date: 20230511
  Transmission Date: 20230721
  Serious: No
  Sender: FDA-Public Use
  Company Number: US-TEVA-2023-US-2880918

PATIENT
  Age: 69 Year
  Sex: Female
  Weight: 78.02 kg

DRUGS (1)
  1. AJOVY [Suspect]
     Active Substance: FREMANEZUMAB-VFRM
     Indication: Migraine prophylaxis
     Dosage: 1 INJECTION MONTHLY
     Route: 065
     Dates: start: 20230419

REACTIONS (3)
  - Urticaria [Recovering/Resolving]
  - Pruritus [Recovering/Resolving]
  - Device audio issue [Unknown]

NARRATIVE: CASE EVENT DATE: 20230419
